FAERS Safety Report 6702613-0 (Version None)
Quarter: 2010Q2

REPORT INFORMATION
  Report Type: 
  Country: None (occurrence: None)
  Receive Date: 20100429
  Receipt Date: 20100419
  Transmission Date: 20101027
  Serious: Yes (Death, Other)
  Sender: FDA-Public Use
  Company Number: US-AMGEN-KDC407983

PATIENT

DRUGS (4)
  1. NEULASTA [Suspect]
     Indication: CHEMOTHERAPY
     Route: 058
  2. BEVACIZUMAB [Suspect]
     Route: 042
  3. DOXORUBICIN HCL [Suspect]
  4. CYCLOPHOSPHAMIDE [Suspect]
     Route: 042

REACTIONS (8)
  - DEATH [None]
  - DRUG TOXICITY [None]
  - EJECTION FRACTION DECREASED [None]
  - HEPATITIS B [None]
  - MALIGNANT NEOPLASM PROGRESSION [None]
  - MULTI-ORGAN FAILURE [None]
  - PNEUMONIA VIRAL [None]
  - SEPSIS [None]
